FAERS Safety Report 9115416 (Version 2)
Quarter: 2013Q1

REPORT INFORMATION
  Report Type: Spontaneous
  Country: US (occurrence: None)
  Receive Date: 20130128
  Receipt Date: 20130213
  Transmission Date: 20140127
  Serious: Yes (Other)
  Sender: FDA-Public Use
  Company Number: AUR-APL-2013-00925

PATIENT
  Age: 56 Year
  Sex: Male

DRUGS (2)
  1. FLUCONAZOLE [Suspect]
     Indication: CANDIDA INFECTION
     Dosage: UNKNOWN
  2. VORICONAZOLE [Suspect]
     Indication: CANDIDA INFECTION
     Dosage: UNKNOWN

REACTIONS (5)
  - Candiduria [None]
  - Drug resistance [None]
  - Pyrexia [None]
  - Candida test positive [None]
  - Multi-organ failure [None]
